FAERS Safety Report 9049969 (Version 2)
Quarter: 2013Q3

REPORT INFORMATION
  Report Type: Spontaneous
  Country: US (occurrence: US)
  Receive Date: 20130205
  Receipt Date: 20130807
  Transmission Date: 20140515
  Serious: No
  Sender: FDA-Public Use
  Company Number: US-009507513-1302USA000932

PATIENT
  Age: 17 Year
  Sex: Female
  Weight: 70.3 kg

DRUGS (7)
  1. IMPLANON [Suspect]
     Indication: CONTRACEPTION
     Dosage: 1 ROD
     Route: 030
     Dates: start: 201301, end: 20130205
  2. IBUPROFEN [Concomitant]
     Dosage: 1 DF, PRN (EVERY 4-6 HOURS)
  3. ROBAXIN [Concomitant]
     Dosage: 500 MG, BID
     Route: 048
  4. TRAZODONE HYDROCHLORIDE [Concomitant]
     Dosage: 200 MG, QPM
     Route: 048
  5. CELEXA [Concomitant]
     Dosage: 10 MG, QD
     Route: 048
     Dates: end: 20130201
  6. PROZAC [Concomitant]
     Dosage: 20 MG, QAM
     Route: 048
  7. VYVANSE [Concomitant]
     Dosage: 30 MG, QAM
     Route: 048

REACTIONS (8)
  - Pain in extremity [Not Recovered/Not Resolved]
  - Hypoaesthesia [Not Recovered/Not Resolved]
  - Chest pain [Recovering/Resolving]
  - Feeling cold [Unknown]
  - Cellulitis [Unknown]
  - Device deployment issue [Unknown]
  - Incorrect route of drug administration [Unknown]
  - Device kink [Unknown]
